FAERS Safety Report 10658469 (Version 1)
Quarter: 2014Q4

REPORT INFORMATION
  Report Type: Report from Study
  Country: KR (occurrence: KR)
  Receive Date: 20141217
  Receipt Date: 20141217
  Transmission Date: 20150529
  Serious: Yes (Hospitalization)
  Sender: FDA-Public Use
  Company Number: KR-OTSUKA-JP-2014-19639

PATIENT

DRUGS (13)
  1. PYRIDOXIN [Concomitant]
     Active Substance: PYRIDOXINE
     Indication: HYPONATRAEMIA
     Dosage: 1 DF DOSAGE FORM, DAILY DOSE
     Route: 048
     Dates: start: 20140711
  2. URSA [Concomitant]
     Indication: HYPONATRAEMIA
     Dosage: 3 DF DOSAGE FORM, DAILY DOSE
     Route: 048
     Dates: start: 20141115
  3. SAMSCA [Suspect]
     Active Substance: TOLVAPTAN
     Indication: HYPONATRAEMIA
     Dosage: 15 MG MILLIGRAM(S), QD
     Route: 048
     Dates: start: 20141124, end: 20141207
  4. THIAMINE CHLORID [Concomitant]
     Indication: HYPONATRAEMIA
     Dosage: 50 MG MILLIGRAM(S), DAILY DOSE
     Route: 042
     Dates: start: 20141101, end: 20141125
  5. COZAAR [Concomitant]
     Active Substance: LOSARTAN POTASSIUM
     Indication: HYPONATRAEMIA
     Dosage: 1 DF DOSAGE FORM, DAILY DOSE
     Route: 048
     Dates: start: 20141102
  6. NORVASC [Concomitant]
     Active Substance: AMLODIPINE BESYLATE
     Indication: HYPONATRAEMIA
     Dosage: 1 DF DOSAGE FORM, DAILY DOSE
     Route: 048
     Dates: start: 20141102
  7. PLATLESS [Concomitant]
     Indication: HYPONATRAEMIA
     Dosage: 1 DF DOSAGE FORM, DAILY DOSE
     Route: 048
     Dates: start: 20141101
  8. EXOPERIN [Concomitant]
     Indication: HYPONATRAEMIA
     Dosage: 1 DF DOSAGE FORM, DAILY DOSE
     Route: 048
     Dates: start: 20141102
  9. PENNEL [Concomitant]
     Indication: HYPONATRAEMIA
     Dosage: 3 DF DOSAGE FORM, DAILY DOSE
     Route: 048
     Dates: start: 20141115
  10. ZANTAC [Concomitant]
     Active Substance: RANITIDINE HYDROCHLORIDE
     Indication: HYPONATRAEMIA
     Dosage: 2 DF DOSAGE FORM, DAILY DOSE
     Route: 048
     Dates: start: 20141102
  11. AIRTAL [Concomitant]
     Indication: HYPONATRAEMIA
     Dosage: 2 DF DOSAGE FORM, DAILY DOSE
     Route: 048
     Dates: start: 20141117, end: 20141125
  12. TUBIS [Concomitant]
     Indication: HYPONATRAEMIA
     Dosage: 4 MG MILLIGRAM(S), DAILY DOSE
     Route: 048
     Dates: start: 20140711
  13. CARNITIL [Concomitant]
     Indication: HYPONATRAEMIA
     Dosage: 1 DF DOSAGE FORM, DAILY DOSE
     Route: 048
     Dates: start: 20141101

REACTIONS (1)
  - Hyperbilirubinaemia [Recovering/Resolving]

NARRATIVE: CASE EVENT DATE: 20141202
